FAERS Safety Report 7255969-7 (Version None)
Quarter: 2011Q1

REPORT INFORMATION
  Report Type: 
  Country: None (occurrence: None)
  Receive Date: 20110129
  Receipt Date: 20100506
  Transmission Date: 20110831
  Serious: No
  Sender: FDA-Public Use
  Company Number: US-ABBOTT-10P-163-0643211-00

PATIENT
  Age: 40 Year
  Sex: Female

DRUGS (5)
  1. FLAGYL [Concomitant]
     Route: 048
  2. CEPHALEXIN [Concomitant]
     Indication: PROPHYLAXIS
     Route: 048
  3. FLAGYL [Concomitant]
     Indication: PROPHYLAXIS
     Route: 048
  4. HUMIRA [Suspect]
     Indication: CROHN'S DISEASE
     Dosage: DAY 1
     Dates: start: 20100406
  5. HUMIRA [Suspect]
     Dosage: HASN'T GOTTEN TO DAY 29 MAINTENANCE DOSE

REACTIONS (3)
  - ARTHRALGIA [None]
  - ALOPECIA [None]
  - INJECTION SITE PAIN [None]
